FAERS Safety Report 9671327 (Version 10)
Quarter: 2015Q1

REPORT INFORMATION
  Report Type: Report from Study
  Country: CA (occurrence: CA)
  Receive Date: 20131106
  Receipt Date: 20150316
  Transmission Date: 20150721
  Serious: Yes (Hospitalization, Other)
  Sender: FDA-Public Use
  Company Number: CA-ROCHE-1273585

PATIENT
  Age: 50 Year
  Sex: Female
  Weight: 72.7 kg

DRUGS (12)
  1. VITAMIN B6 [Concomitant]
     Active Substance: PYRIDOXINE HYDROCHLORIDE
  2. MELOXICAM. [Concomitant]
     Active Substance: MELOXICAM
  3. VITAMIN C [Concomitant]
     Active Substance: ASCORBIC ACID
  4. FOLIC ACID. [Concomitant]
     Active Substance: FOLIC ACID
  5. ACTEMRA [Suspect]
     Active Substance: TOCILIZUMAB
     Indication: RHEUMATOID ARTHRITIS
     Route: 042
     Dates: start: 20130607, end: 20131021
  6. IBUPROFEN. [Concomitant]
     Active Substance: IBUPROFEN
  7. ISONIAZID. [Concomitant]
     Active Substance: ISONIAZID
     Route: 065
  8. METHOTREXATE [Concomitant]
     Active Substance: METHOTREXATE
     Route: 065
  9. WARFARIN [Concomitant]
     Active Substance: WARFARIN
  10. RITUXAN [Suspect]
     Active Substance: RITUXIMAB
     Indication: RHEUMATOID ARTHRITIS
     Dosage: FREQUENCY DAY 1 AND 15
     Route: 042
     Dates: start: 20131224
  11. HYDROXYCHLOROQUINE [Concomitant]
     Active Substance: HYDROXYCHLOROQUINE
     Route: 065
  12. SULFASALAZINE. [Concomitant]
     Active Substance: SULFASALAZINE
     Route: 065

REACTIONS (11)
  - Tuberculin test positive [Unknown]
  - Influenza [Unknown]
  - Nasopharyngitis [Recovered/Resolved]
  - Infusion related reaction [Recovered/Resolved]
  - Asthma [Unknown]
  - Abdominal pain upper [Unknown]
  - Nausea [Unknown]
  - Limb operation [Unknown]
  - Arthropathy [Unknown]
  - Deep vein thrombosis [Unknown]
  - Arthralgia [Unknown]

NARRATIVE: CASE EVENT DATE: 201311
